FAERS Safety Report 8438281-X (Version None)
Quarter: 2012Q2

REPORT INFORMATION
  Report Type: 
  Country: None (occurrence: None)
  Receive Date: 20120614
  Receipt Date: 20120605
  Transmission Date: 20120825
  Serious: Yes (Hospitalization, Other)
  Sender: FDA-Public Use
  Company Number: US-BAXTER-2012BH006129

PATIENT
  Sex: Male
  Weight: 121.67 kg

DRUGS (3)
  1. EXTRANEAL [Suspect]
     Route: 033
     Dates: start: 20120224, end: 20120514
  2. DIANEAL PD-2 W/ DEXTROSE 1.5% [Suspect]
     Route: 033
     Dates: end: 20120514
  3. DIANEAL PD-2 W/ DEXTROSE 1.5% [Suspect]
     Indication: PERITONEAL DIALYSIS
     Route: 033
     Dates: end: 20120514

REACTIONS (6)
  - URINARY TRACT INFECTION [None]
  - ASTHENIA [None]
  - DRUG INEFFECTIVE [None]
  - ORTHOSTATIC HYPOTENSION [None]
  - URINE OUTPUT DECREASED [None]
  - BLOOD SODIUM DECREASED [None]
